FAERS Safety Report 8307112-0 (Version None)
Quarter: 2012Q2

REPORT INFORMATION
  Report Type: 
  Country: None (occurrence: None)
  Receive Date: 20120424
  Receipt Date: 20120419
  Transmission Date: 20120825
  Serious: Yes (Death, Hospitalization, Other)
  Sender: FDA-Public Use
  Company Number: PHHY2012EC034054

PATIENT
  Sex: Female

DRUGS (5)
  1. DIOVAN HCT [Suspect]
     Indication: HYPERTENSION
     Dosage: 1 DF, QD (160 MFG VALS AND 12.5 MG HYDRO)
     Route: 048
     Dates: start: 20100404, end: 20110201
  2. MORPHINE [Concomitant]
     Dosage: UNK
  3. CRYSTALLINE INSULIN [Concomitant]
     Dosage: UNK
  4. INSULIN [Concomitant]
     Dosage: UNK
  5. HEPARIN [Concomitant]
     Dosage: UNK

REACTIONS (5)
  - METASTATIC UTERINE CANCER [None]
  - PELVIC NEOPLASM [None]
  - WEIGHT DECREASED [None]
  - GENERAL PHYSICAL HEALTH DETERIORATION [None]
  - UTERINE CANCER [None]
